FAERS Safety Report 21588032 (Version 3)
Quarter: 2023Q1

REPORT INFORMATION
  Report Type: Spontaneous
  Country: JP (occurrence: JP)
  Receive Date: 20221114
  Receipt Date: 20230102
  Transmission Date: 20230417
  Serious: Yes (Hospitalization)
  Sender: FDA-Public Use
  Company Number: JP-JNJFOC-20221129027

PATIENT

DRUGS (2)
  1. INVEGA [Suspect]
     Active Substance: PALIPERIDONE
     Indication: Product used for unknown indication
     Route: 048
  2. RISPERDAL [Concomitant]
     Active Substance: RISPERIDONE
     Dosage: DOSE UNKNOWN
     Route: 048

REACTIONS (1)
  - Ankle fracture [Unknown]
